FAERS Safety Report 5264112-5 (Version None)
Quarter: 2007Q1

REPORT INFORMATION
  Report Type: 
  Country: None (occurrence: None)
  Receive Date: 20070313
  Receipt Date: 20070209
  Transmission Date: 20070707
  Serious: Yes (Other)
  Sender: FDA-Public Use
  Company Number: US-PFIZER INC-2007010179

PATIENT
  Sex: Male
  Weight: 97.5 kg

DRUGS (13)
  1. LYRICA [Suspect]
     Indication: NEUROPATHY
     Dates: start: 20070117, end: 20070201
  2. LYRICA [Suspect]
     Indication: NERVE INJURY
  3. LYRICA [Suspect]
     Indication: BURNING SENSATION
  4. LYRICA [Suspect]
     Indication: PARAESTHESIA
  5. LYRICA [Suspect]
     Indication: HYPOAESTHESIA
  6. PRILOSEC [Concomitant]
  7. FUROSEMIDE [Concomitant]
  8. LACTULOSE [Concomitant]
  9. RANITIDINE [Concomitant]
  10. TEGRETOL [Concomitant]
  11. BACLOFEN [Concomitant]
  12. ALPRAZOLAM [Concomitant]
  13. ANTIBIOTICS [Concomitant]

REACTIONS (6)
  - BLOOD CHOLESTEROL INCREASED [None]
  - BURNING SENSATION [None]
  - DISTURBANCE IN ATTENTION [None]
  - OEDEMA PERIPHERAL [None]
  - SLUGGISHNESS [None]
  - TREMOR [None]
